FAERS Safety Report 10796256 (Version 1)
Quarter: 2015Q1

REPORT INFORMATION
  Report Type: Spontaneous
  Country: IT (occurrence: IT)
  Receive Date: 20150216
  Receipt Date: 20150216
  Transmission Date: 20150721
  Serious: Yes (Other)
  Sender: FDA-Public Use
  Company Number: IT-RANBAXY-2015R1-92924

PATIENT
  Age: 76 Year
  Sex: Male

DRUGS (1)
  1. METFORMIN [Suspect]
     Active Substance: METFORMIN HYDROCHLORIDE
     Indication: TYPE 2 DIABETES MELLITUS
     Dosage: UNK
     Route: 065

REACTIONS (5)
  - Toxicity to various agents [Recovered/Resolved]
  - Hypoglycaemia [Unknown]
  - Hyperlactacidaemia [Unknown]
  - Dyspnoea [Unknown]
  - Metabolic acidosis [Unknown]
